FAERS Safety Report 13757924 (Version 1)
Quarter: 2017Q3

REPORT INFORMATION
  Report Type: Spontaneous
  Country: CO (occurrence: CO)
  Receive Date: 20170717
  Receipt Date: 20170717
  Transmission Date: 20171127
  Serious: Yes (Death, Other)
  Sender: FDA-Public Use
  Company Number: CO-009507513-1707COL002528

PATIENT
  Sex: Female

DRUGS (1)
  1. KEYTRUDA [Suspect]
     Active Substance: PEMBROLIZUMAB
     Indication: METASTATIC MALIGNANT MELANOMA
     Dosage: 2 MG/KG, UNK, CYCLE 1
     Dates: start: 20170527, end: 20170527

REACTIONS (2)
  - Death [Fatal]
  - Depression [Fatal]

NARRATIVE: CASE EVENT DATE: 2017
